FAERS Safety Report 16650127 (Version 4)
Quarter: 2019Q3

REPORT INFORMATION
  Report Type: Report from Study
  Country: None (occurrence: US)
  Receive Date: 20190731
  Receipt Date: 20190905
  Transmission Date: 20191004
  Serious: Yes (Other)
  Sender: FDA-Public Use
  Company Number: US-ABBVIE-19K-163-2870393-00

PATIENT
  Age: 61 Year
  Sex: Male
  Weight: 88.53 kg

DRUGS (3)
  1. HUMIRA [Suspect]
     Active Substance: ADALIMUMAB
     Indication: CROHN^S DISEASE
     Route: 058
     Dates: start: 201808
  2. PREDNISONE. [Concomitant]
     Active Substance: PREDNISONE
     Indication: CROHN^S DISEASE
  3. OPANA [Suspect]
     Active Substance: OXYMORPHONE HYDROCHLORIDE
     Indication: CROHN^S DISEASE
     Route: 065

REACTIONS (18)
  - Hypotension [Unknown]
  - Vomiting [Recovering/Resolving]
  - Hand fracture [Unknown]
  - Renal failure [Recovered/Resolved]
  - Gastrointestinal mucosa hyperaemia [Recovering/Resolving]
  - Gastrointestinal inflammation [Recovering/Resolving]
  - Hypophagia [Unknown]
  - Fall [Unknown]
  - Urinary retention [Recovered/Resolved]
  - Anxiety [Recovering/Resolving]
  - Dehydration [Recovered/Resolved]
  - Dizziness [Unknown]
  - Loss of consciousness [Unknown]
  - Feeling hot [Unknown]
  - Weight decreased [Not Recovered/Not Resolved]
  - Dyspepsia [Unknown]
  - Crohn^s disease [Unknown]
  - Nail injury [Unknown]

NARRATIVE: CASE EVENT DATE: 201907
